FAERS Safety Report 19482164 (Version 1)
Quarter: 2021Q3

REPORT INFORMATION
  Report Type: Spontaneous
  Country: US (occurrence: US)
  Receive Date: 20210701
  Receipt Date: 20210701
  Transmission Date: 20211014
  Serious: Yes (Hospitalization, Other)
  Sender: FDA-Public Use
  Company Number: US-IPCA LABORATORIES LIMITED-IPC-2021-US-001291

PATIENT

DRUGS (8)
  1. LISINOPRIL. [Concomitant]
     Active Substance: LISINOPRIL
     Indication: PRODUCT USED FOR UNKNOWN INDICATION
     Dosage: 20 MILLIGRAM
     Route: 048
  2. LEVEMIR [Concomitant]
     Active Substance: INSULIN DETEMIR
     Dosage: 100 UNIT
     Route: 058
  3. ATORVASTATIN [Concomitant]
     Active Substance: ATORVASTATIN
     Indication: PRODUCT USED FOR UNKNOWN INDICATION
     Dosage: 20 MILLIGRAM
     Route: 048
  4. LEVEMIR [Concomitant]
     Active Substance: INSULIN DETEMIR
     Indication: PRODUCT USED FOR UNKNOWN INDICATION
     Dosage: 10 UNIT
     Route: 058
  5. METFORMIN [Suspect]
     Active Substance: METFORMIN HYDROCHLORIDE
     Indication: PRODUCT USED FOR UNKNOWN INDICATION
     Dosage: 850 MILLIGRAM, BID
     Route: 048
  6. INVEGA [Concomitant]
     Active Substance: PALIPERIDONE
     Indication: PRODUCT USED FOR UNKNOWN INDICATION
     Dosage: 3 MILLIGRAM, HS
     Route: 048
  7. HYDROXYZINE PAMOATE. [Concomitant]
     Active Substance: HYDROXYZINE PAMOATE
     Indication: PRODUCT USED FOR UNKNOWN INDICATION
     Dosage: 50 MILLIGRAM
     Route: 048
  8. INVEGA SUSTENNA [Concomitant]
     Active Substance: PALIPERIDONE PALMITATE
     Indication: PRODUCT USED FOR UNKNOWN INDICATION
     Dosage: 156 MILLIGRAM PER MILLILITRE (MONTHLY)
     Route: 030

REACTIONS (13)
  - Hypotension [Recovering/Resolving]
  - Dysarthria [Recovering/Resolving]
  - Oliguria [Recovering/Resolving]
  - Confusional state [Recovering/Resolving]
  - Pneumonia [Recovering/Resolving]
  - Metabolic acidosis [Recovering/Resolving]
  - Encephalopathy [Recovering/Resolving]
  - Condition aggravated [Recovering/Resolving]
  - Nephrolithiasis [Recovering/Resolving]
  - Overdose [Unknown]
  - Lactic acidosis [Recovering/Resolving]
  - Poisoning [Recovering/Resolving]
  - Bradycardia [Recovering/Resolving]
